FAERS Safety Report 6809568-9 (Version None)
Quarter: 2010Q2

REPORT INFORMATION
  Report Type: 
  Country: None (occurrence: None)
  Receive Date: 20100630
  Receipt Date: 20100617
  Transmission Date: 20101027
  Serious: Yes (Other)
  Sender: FDA-Public Use
  Company Number: PHHY2010CA38322

PATIENT
  Sex: Female

DRUGS (1)
  1. ACLASTA [Suspect]
     Indication: OSTEOPOROSIS
     Dosage: 5 MG/ 100 ML
     Dates: start: 20100608

REACTIONS (9)
  - ARTHRALGIA [None]
  - BLOOD MAGNESIUM INCREASED [None]
  - CHILLS [None]
  - FATIGUE [None]
  - GLOSSODYNIA [None]
  - HEADACHE [None]
  - MYALGIA [None]
  - OROPHARYNGEAL PAIN [None]
  - TENDERNESS [None]
